FAERS Safety Report 23217914 (Version 1)
Quarter: 2023Q4

REPORT INFORMATION
  Report Type: Spontaneous
  Country: EG (occurrence: EG)
  Receive Date: 20231122
  Receipt Date: 20231122
  Transmission Date: 20240109
  Serious: Yes (Hospitalization, Other)
  Sender: FDA-Public Use
  Company Number: EG-NOVOPROD-1139785

PATIENT
  Age: 74 Year
  Sex: Female
  Weight: 77 kg

DRUGS (16)
  1. ACTRAPID [Suspect]
     Active Substance: INSULIN HUMAN
     Indication: Diabetes mellitus
     Dosage: 30 IU, QD(10U AT MORNING, 10U AT AFTERNOON AND 10U AT NIGHT)
     Route: 058
  2. LANTUS [Concomitant]
     Active Substance: INSULIN GLARGINE
     Indication: Diabetes mellitus
     Dosage: 10 U
     Route: 058
  3. LANTUS [Concomitant]
     Active Substance: INSULIN GLARGINE
     Dosage: 5 U
     Route: 058
  4. ARIMIDEX [Concomitant]
     Active Substance: ANASTROZOLE
     Indication: Neoplasm malignant
     Dosage: 1 TAB/DAY
     Route: 048
     Dates: start: 20211228
  5. HYDROCHLOROTHIAZIDE\VALSARTAN [Concomitant]
     Active Substance: HYDROCHLOROTHIAZIDE\VALSARTAN
     Indication: Hypertension
     Dosage: 0.5 TAB/DAY
     Route: 048
  6. LANOXIN [Concomitant]
     Active Substance: DIGOXIN
     Indication: Cardiac disorder
     Dosage: 0.5 TAB/DAY
     Route: 048
  7. SPANIELA [Concomitant]
     Indication: Cardiac disorder
     Dosage: 1 TAB/DAY AT NIGHT
     Route: 048
  8. ANGIOFOX [Concomitant]
     Indication: Cardiac disorder
     Dosage: 1 TAB/DAY AFTER BREAKFAST
     Route: 048
  9. TORSEMIDE [Concomitant]
     Active Substance: TORSEMIDE
     Indication: Diuretic therapy
     Dosage: 10 MG 1 TAB/DAY (EMPTY STOMACH)
     Route: 048
  10. WARFARIN SODIUM [Concomitant]
     Active Substance: WARFARIN SODIUM
     Indication: Anticoagulant therapy
     Dosage: 1 TAB/DAY
     Route: 048
  11. LIPONA [ATORVASTATIN] [Concomitant]
     Indication: Blood cholesterol
     Dosage: 1 TAB/DAY
     Route: 048
  12. CARVEDILOL [Concomitant]
     Active Substance: CARVEDILOL
     Indication: Cardiac disorder
     Dosage: 6.25 (0.5 TAB AT MORNING AND 0.5 AT NIGHT)
     Route: 048
  13. CIDOPHAGE [Concomitant]
     Indication: Diabetes mellitus
     Dosage: 2 TAB/DAY
     Route: 048
  14. ATOREZA [Concomitant]
     Indication: Blood cholesterol
     Dosage: 1 TAB/DAY
     Route: 048
  15. LEVOTHYROXINE [Concomitant]
     Active Substance: LEVOTHYROXINE
     Indication: Thyroid disorder
     Dosage: 1 TAB/DAY ON EMPTY STOMACH
     Route: 048
  16. BON-ONE [Concomitant]
     Indication: Renal disorder
     Dosage: 2 TAB AT MORNING

REACTIONS (3)
  - Cataract [Recovered/Resolved]
  - Renal failure [Not Recovered/Not Resolved]
  - Hyperglycaemia [Recovered/Resolved]

NARRATIVE: CASE EVENT DATE: 20230101
